FAERS Safety Report 5490877-3 (Version None)
Quarter: 2007Q4

REPORT INFORMATION
  Report Type: 
  Country: None (occurrence: None)
  Receive Date: 20071019
  Receipt Date: 20071010
  Transmission Date: 20080405
  Serious: Yes (Death, Other)
  Sender: FDA-Public Use
  Company Number: JP-AVENTIS-200712717JP

PATIENT

DRUGS (4)
  1. TAXOTERE [Suspect]
     Route: 013
  2. FLUOROURACIL [Concomitant]
     Dosage: DOSE: 500-600 MG/M2/24H
     Route: 041
  3. PLATINUM [Concomitant]
     Dosage: DOSE: 60 MG/M2/4H
     Route: 041
  4. RADIOTHERAPY [Concomitant]
     Dosage: DOSE: 60-72 GY/TOTAL

REACTIONS (2)
  - ADVERSE DRUG REACTION [None]
  - DEATH [None]
